FAERS Safety Report 7389163-6 (Version None)
Quarter: 2011Q2

REPORT INFORMATION
  Report Type: 
  Country: None (occurrence: None)
  Receive Date: 20110401
  Receipt Date: 20110322
  Transmission Date: 20111010
  Serious: Yes (Disabling)
  Sender: FDA-Public Use
  Company Number: JP-SHIRE-SPV1-2010-01157

PATIENT

DRUGS (21)
  1. CALTAN [Concomitant]
     Indication: HYPERPHOSPHATAEMIA
     Dosage: 1500 MG, UNK
     Route: 048
     Dates: start: 20080502, end: 20100319
  2. OXAROL [Suspect]
     Indication: PRODUCT USED FOR UNKNOWN INDICATION
     Dosage: 10 UG, UNK
     Route: 042
     Dates: start: 20080314, end: 20090713
  3. ZYLORIC [Concomitant]
     Indication: PRODUCT USED FOR UNKNOWN INDICATION
     Dosage: 100 MG, UNKNOWN
     Route: 048
  4. LASIX [Concomitant]
     Indication: PRODUCT USED FOR UNKNOWN INDICATION
     Dosage: 200 MG, UNKNOWN
     Route: 048
  5. LOCHOL                             /00638501/ [Concomitant]
     Indication: PRODUCT USED FOR UNKNOWN INDICATION
     Dosage: 30 MG, UNKNOWN
     Route: 048
  6. MYSLEE [Concomitant]
     Indication: PRODUCT USED FOR UNKNOWN INDICATION
     Dosage: 5 MG, UNKNOWN
     Route: 048
  7. OMEPRAL                            /00661201/ [Concomitant]
     Dosage: 10 MG FREQUENCY UNK
     Route: 048
  8. LANTHANUM CARBONATE [Suspect]
     Indication: HYPERPHOSPHATAEMIA
     Dosage: 750 MG, TOTAL DAILY DOSE
     Route: 048
     Dates: start: 20090612, end: 20091221
  9. OXAROL [Suspect]
     Dosage: 2.5 UG, UNK
     Route: 042
     Dates: start: 20091228, end: 20100115
  10. OXAROL [Suspect]
     Dosage: 2.5 UG, UNK
     Route: 042
     Dates: start: 20100118, end: 20100205
  11. LANTUS [Concomitant]
     Indication: PRODUCT USED FOR UNKNOWN INDICATION
     Dosage: 19 IU, UNK
     Route: 058
     Dates: start: 20090520
  12. OXAROL [Suspect]
     Dosage: 5 UG, UNK
     Route: 042
     Dates: start: 20091221, end: 20091225
  13. LANTHANUM CARBONATE [Suspect]
     Dosage: UNK MG, UNKNOWN
     Route: 048
  14. OXAROL [Suspect]
     Dosage: 5 UG, UNK
     Route: 042
     Dates: start: 20090717, end: 20091218
  15. OXAROL [Suspect]
     Dosage: 2.5 UG, UNK
     Route: 042
     Dates: start: 20100208, end: 20100310
  16. AMLODIPINE [Concomitant]
     Indication: PRODUCT USED FOR UNKNOWN INDICATION
     Dosage: 5 MG, UNKNOWN
     Route: 048
  17. NOVORAPID [Concomitant]
     Indication: PRODUCT USED FOR UNKNOWN INDICATION
     Dosage: 21 IU, UNK
     Route: 058
  18. CALTAN [Concomitant]
     Dosage: 1000MG DAILY
     Route: 048
     Dates: start: 20100320
  19. COMELIAN [Concomitant]
     Indication: PRODUCT USED FOR UNKNOWN INDICATION
     Dosage: 300 MG, UNKNOWN
     Route: 048
  20. BLOPRESS [Concomitant]
     Indication: PRODUCT USED FOR UNKNOWN INDICATION
     Dosage: 8 MG, UNKNOWN
     Route: 048
  21. FRANDOL [Concomitant]
     Indication: PRODUCT USED FOR UNKNOWN INDICATION
     Dosage: 40 MG, UNKNOWN
     Route: 062
     Dates: start: 20091101

REACTIONS (3)
  - VOMITING [None]
  - LEG AMPUTATION [None]
  - HYPERPHOSPHATASAEMIA [None]
